FAERS Safety Report 4726758-X (Version None)
Quarter: 2005Q3

REPORT INFORMATION
  Report Type: 
  Country: None (occurrence: None)
  Receive Date: 20050725
  Receipt Date: 20050419
  Transmission Date: 20060218
  Serious: No
  Sender: FDA-Public Use
  Company Number: USA050496174

PATIENT
  Age: 15 Year
  Sex: Male
  Weight: 55 kg

DRUGS (4)
  1. STRATTERA [Suspect]
     Dosage: 40 MG
  2. PROZAC [Concomitant]
  3. RISPERDAL [Concomitant]
  4. INDERAL [Concomitant]

REACTIONS (2)
  - MYDRIASIS [None]
  - SEXUAL DYSFUNCTION [None]
